FAERS Safety Report 23411278 (Version 1)
Quarter: 2024Q1

REPORT INFORMATION
  Report Type: Spontaneous
  Country: US (occurrence: US)
  Receive Date: 20240117
  Receipt Date: 20240117
  Transmission Date: 20240410
  Serious: No
  Sender: FDA-Public Use
  Company Number: US-FERRINGPH-2023FE04760

PATIENT
  Age: 71 Year
  Sex: Female
  Weight: 53.515 kg

DRUGS (1)
  1. CLENPIQ [Suspect]
     Active Substance: ANHYDROUS CITRIC ACID\MAGNESIUM OXIDE\SODIUM PICOSULFATE
     Indication: Bowel preparation
     Dosage: UNK
     Route: 048
     Dates: start: 20230925, end: 20230925

REACTIONS (6)
  - Sneezing [Recovered/Resolved]
  - Dysphonia [Recovering/Resolving]
  - Paraesthesia oral [Recovering/Resolving]
  - Throat irritation [Recovering/Resolving]
  - Product use complaint [Unknown]
  - Product quality issue [Unknown]

NARRATIVE: CASE EVENT DATE: 20230925
